FAERS Safety Report 19722929 (Version 3)
Quarter: 2022Q1

REPORT INFORMATION
  Report Type: Report from Study
  Country: US (occurrence: US)
  Receive Date: 20210820
  Receipt Date: 20220316
  Transmission Date: 20220423
  Serious: Yes (Life-Threatening, Other)
  Sender: FDA-Public Use
  Company Number: US-BIOGEN-2021BI01040663

PATIENT
  Sex: Male

DRUGS (7)
  1. TECFIDERA [Suspect]
     Active Substance: DIMETHYL FUMARATE
     Indication: Multiple sclerosis
     Route: 065
     Dates: start: 20180703, end: 20210308
  2. TECFIDERA [Suspect]
     Active Substance: DIMETHYL FUMARATE
     Route: 065
     Dates: start: 20210527
  3. TECFIDERA [Suspect]
     Active Substance: DIMETHYL FUMARATE
     Dosage: STARTING DOSE
     Route: 048
  4. TECFIDERA [Suspect]
     Active Substance: DIMETHYL FUMARATE
     Dosage: MAINTENANCE DOSE
     Route: 048
  5. VUMERITY [Suspect]
     Active Substance: DIROXIMEL FUMARATE
     Indication: Multiple sclerosis
     Route: 065
     Dates: start: 20210308, end: 20210518
  6. VUMERITY [Suspect]
     Active Substance: DIROXIMEL FUMARATE
     Dosage: STARTING DOSE
     Route: 048
  7. VUMERITY [Suspect]
     Active Substance: DIROXIMEL FUMARATE
     Dosage: MAINTENANCE DOSE
     Route: 048

REACTIONS (4)
  - Paralysis [Unknown]
  - Loss of consciousness [Recovered/Resolved]
  - Fall [Recovered/Resolved]
  - Pain [Unknown]
